FAERS Safety Report 11221657 (Version 1)
Quarter: 2015Q2

REPORT INFORMATION
  Report Type: Spontaneous
  Country: US (occurrence: None)
  Receive Date: 20150625
  Receipt Date: 20150625
  Transmission Date: 20150821
  Serious: Yes (Disabling, Other)
  Sender: FDA-Public Use
  Company Number: None

PATIENT
  Age: 59 Year
  Sex: Female
  Weight: 52.16 kg

DRUGS (17)
  1. MAGNESIUM [Concomitant]
     Active Substance: MAGNESIUM
  2. SELINIUM [Concomitant]
  3. ACETY-L CARNITINE [Concomitant]
  4. ZINC [Concomitant]
     Active Substance: ZINC\ZINC CHLORIDE
  5. COQ10 [Concomitant]
     Active Substance: UBIDECARENONE
  6. VITAMIN E [Concomitant]
     Active Substance: .ALPHA.-TOCOPHEROL
  7. PROBIOTICS [Concomitant]
     Active Substance: PROBIOTICS NOS
  8. CIPRO [Suspect]
     Active Substance: CIPROFLOXACIN HYDROCHLORIDE
     Indication: URINARY TRACT INFECTION
     Dates: start: 20120618, end: 20120622
  9. BIOTIN [Concomitant]
     Active Substance: BIOTIN
  10. METHYL FOLATE [Concomitant]
  11. VITAMIN D [Concomitant]
     Active Substance: CHOLECALCIFEROL
  12. METHYL B-12 [Concomitant]
  13. ALPHA LIPOIC ACID [Concomitant]
     Active Substance: .ALPHA.-LIPOIC ACID
  14. VITAMIN B3 [Concomitant]
     Active Substance: NIACIN
  15. RESVERATROL TURMERIC [Concomitant]
  16. VITAMIN B6 [Concomitant]
     Active Substance: PYRIDOXINE HYDROCHLORIDE
  17. VITAMIN C [Concomitant]
     Active Substance: ASCORBIC ACID

REACTIONS (10)
  - Food intolerance [None]
  - Deafness unilateral [None]
  - Tinnitus [None]
  - Bedridden [None]
  - Impaired work ability [None]
  - Gastrointestinal disorder [None]
  - Antinuclear antibody increased [None]
  - Psoriatic arthropathy [None]
  - Fatigue [None]
  - Psoriasis [None]

NARRATIVE: CASE EVENT DATE: 20120618
